FAERS Safety Report 14555007 (Version 2)
Quarter: 2018Q1

REPORT INFORMATION
  Report Type: Report from Study
  Country: US (occurrence: US)
  Receive Date: 20180220
  Receipt Date: 20180228
  Transmission Date: 20180509
  Serious: Yes (Hospitalization)
  Sender: FDA-Public Use
  Company Number: PHHO2017US017374

PATIENT
  Age: 55 Year
  Sex: Female

DRUGS (8)
  1. PREDNISONE. [Suspect]
     Active Substance: PREDNISONE
     Dosage: 20 MG, BID
     Route: 048
     Dates: start: 20171127, end: 20171215
  2. PREDNISONE. [Suspect]
     Active Substance: PREDNISONE
     Dosage: 40 MG, BID
     Route: 048
     Dates: start: 20171122, end: 20171126
  3. PREDNISONE. [Suspect]
     Active Substance: PREDNISONE
     Dosage: 80 MG, BID
     Route: 048
     Dates: start: 20171112, end: 20171116
  4. PREDNISONE. [Suspect]
     Active Substance: PREDNISONE
     Dosage: 60 MG, BID
     Route: 048
     Dates: start: 20171117, end: 20171121
  5. PREDNISONE. [Suspect]
     Active Substance: PREDNISONE
     Indication: ACUTE GRAFT VERSUS HOST DISEASE
     Dosage: 110 MG, BID
     Route: 048
     Dates: start: 20171106, end: 20171111
  6. INC424A [Suspect]
     Active Substance: RUXOLITINIB
     Dosage: 15 MG, BID
     Route: 048
     Dates: start: 20171208, end: 20171215
  7. INC424A [Suspect]
     Active Substance: RUXOLITINIB
     Dosage: 10 MG, BID
     Route: 048
     Dates: start: 20171118, end: 20171207
  8. INC424A [Suspect]
     Active Substance: RUXOLITINIB
     Indication: ACUTE GRAFT VERSUS HOST DISEASE
     Dosage: 5 MG, BID
     Route: 048
     Dates: start: 20171110, end: 20171117

REACTIONS (3)
  - Acute myeloid leukaemia recurrent [Not Recovered/Not Resolved]
  - Upper gastrointestinal haemorrhage [Recovered/Resolved]
  - Gastritis [Recovered/Resolved]

NARRATIVE: CASE EVENT DATE: 20171218
